FAERS Safety Report 10685846 (Version 1)
Quarter: 2014Q4

REPORT INFORMATION
  Report Type: Spontaneous
  Country: BR (occurrence: BR)
  Receive Date: 20141231
  Receipt Date: 20141231
  Transmission Date: 20150529
  Serious: Yes (Other)
  Sender: FDA-Public Use
  Company Number: BR-BAXTER-2014BAX075112

PATIENT
  Sex: Male
  Weight: 78 kg

DRUGS (2)
  1. FEIBA [Suspect]
     Active Substance: ANTI-INHIBITOR COAGULANT COMPLEX
     Indication: PROPHYLAXIS
     Route: 065
  2. FEIBA [Suspect]
     Active Substance: ANTI-INHIBITOR COAGULANT COMPLEX
     Route: 065

REACTIONS (4)
  - Swelling [Recovered/Resolved]
  - Gingival bleeding [Recovered/Resolved]
  - Drug dependence [Recovered/Resolved]
  - Feeling abnormal [Recovered/Resolved]
